FAERS Safety Report 17310354 (Version 1)
Quarter: 2020Q1

REPORT INFORMATION
  Report Type: Other
  Country: US (occurrence: US)
  Receive Date: 20200123
  Receipt Date: 20200123
  Transmission Date: 20200409
  Serious: Yes (Death)
  Sender: FDA-Public Use
  Company Number: US-GENUS_LIFESCIENCES-USA-POI0580202000137

PATIENT
  Age: 32 Year
  Sex: Male

DRUGS (5)
  1. GOPRELTO [Suspect]
     Active Substance: COCAINE HYDROCHLORIDE
     Indication: PRODUCT USED FOR UNKNOWN INDICATION
     Dates: end: 2018
  2. HEROIN [Suspect]
     Active Substance: DIAMORPHINE
     Indication: PRODUCT USED FOR UNKNOWN INDICATION
     Dates: end: 2018
  3. FENTANYL. [Suspect]
     Active Substance: FENTANYL
     Indication: PRODUCT USED FOR UNKNOWN INDICATION
     Dates: end: 2018
  4. FENTANYL ANALOG ACETYL FENTANYL [Suspect]
     Active Substance: ACETYLFENTANYL
     Indication: PRODUCT USED FOR UNKNOWN INDICATION
     Dates: end: 2018
  5. METHAMPHETAMINE [Suspect]
     Active Substance: METHAMPHETAMINE
     Indication: PRODUCT USED FOR UNKNOWN INDICATION
     Dates: end: 2018

REACTIONS (3)
  - Adverse reaction [Fatal]
  - Respiratory arrest [Fatal]
  - Cardiac arrest [Fatal]

NARRATIVE: CASE EVENT DATE: 2018
